FAERS Safety Report 7139380-5 (Version None)
Quarter: 2010Q4

REPORT INFORMATION
  Report Type: 
  Country: None (occurrence: None)
  Receive Date: 20101206
  Receipt Date: 20101126
  Transmission Date: 20110411
  Serious: Yes (Other)
  Sender: FDA-Public Use
  Company Number: JP-ABBOTT-10P-087-0688622-00

PATIENT
  Sex: Male
  Weight: 57.9 kg

DRUGS (2)
  1. SEVOFLURANE [Suspect]
     Indication: MAINTENANCE OF ANAESTHESIA
     Dosage: MAINTENANCE: 1.5%
     Route: 055
     Dates: start: 20091014, end: 20091014
  2. PROPOFOL [Concomitant]
     Indication: INDUCTION OF ANAESTHESIA
     Route: 042
     Dates: start: 20091014, end: 20091014

REACTIONS (1)
  - SPINAL CORD INFARCTION [None]
